FAERS Safety Report 8216241-1 (Version None)
Quarter: 2012Q1

REPORT INFORMATION
  Report Type: 
  Country: None (occurrence: None)
  Receive Date: 20120316
  Receipt Date: 20120315
  Transmission Date: 20120608
  Serious: Yes (Hospitalization)
  Sender: FDA-Public Use
  Company Number: DE-BAYER-2012-026062

PATIENT
  Age: 78 Year
  Sex: Female
  Weight: 93 kg

DRUGS (1)
  1. ULTRAVIST 150 [Suspect]
     Indication: COMPUTERISED TOMOGRAM
     Dosage: 123 ML, UNK
     Route: 042
     Dates: start: 20120222, end: 20120222

REACTIONS (4)
  - FLUSHING [None]
  - RESPIRATORY DISTRESS [None]
  - BRONCHOSPASM [None]
  - FEAR OF DEATH [None]
